FAERS Safety Report 6903111-1 (Version None)
Quarter: 2010Q3

REPORT INFORMATION
  Report Type: 
  Country: None (occurrence: None)
  Receive Date: 20100803
  Receipt Date: 20080728
  Transmission Date: 20110219
  Serious: No
  Sender: FDA-Public Use
  Company Number: US-PFIZER INC-2008063633

PATIENT
  Sex: Male

DRUGS (5)
  1. LYRICA [Suspect]
     Indication: ARTHRALGIA
     Dates: start: 20080101
  2. LYRICA [Suspect]
     Indication: NEURALGIA
  3. LYRICA [Suspect]
     Indication: MYALGIA
  4. ZYVOX [Concomitant]
     Dates: start: 20080408
  5. ALL OTHER THERAPEUTIC PRODUCTS [Concomitant]

REACTIONS (2)
  - DIZZINESS [None]
  - MUSCULAR WEAKNESS [None]
